FAERS Safety Report 23777521 (Version 1)
Quarter: 2024Q2

REPORT INFORMATION
  Report Type: Spontaneous
  Country: PA (occurrence: PA)
  Receive Date: 20240424
  Receipt Date: 20240424
  Transmission Date: 20240716
  Serious: Yes (Other)
  Sender: FDA-Public Use
  Company Number: PA-002147023-NVSC2022PA040826

PATIENT
  Age: 50 Year
  Sex: Female

DRUGS (9)
  1. ANASTROZOLE [Suspect]
     Active Substance: ANASTROZOLE
     Indication: Breast cancer
     Dosage: 2 MG, QD (TABLET) (STOPPED 2 WEEKS AGO)
     Route: 048
     Dates: start: 201902
  2. KISQALI [Suspect]
     Active Substance: RIBOCICLIB
     Dosage: 2 DOSAGE FORM
     Route: 048
  3. KISQALI [Suspect]
     Active Substance: RIBOCICLIB
     Dosage: 200 MG, QD (STOP DATE: JUL 2023)
     Route: 048
     Dates: start: 201902
  4. KISQALI [Suspect]
     Active Substance: RIBOCICLIB
     Dosage: 200 MG (1 TABLET, DAILY)
     Route: 048
     Dates: start: 202202
  5. KISQALI [Suspect]
     Active Substance: RIBOCICLIB
     Dosage: 3 DOSAGE FORM, QD
     Route: 048
     Dates: start: 20190202
  6. KISQALI [Suspect]
     Active Substance: RIBOCICLIB
     Dosage: 3 DOSAGE FORM, QD
     Route: 048
  7. KISQALI [Suspect]
     Active Substance: RIBOCICLIB
     Indication: Breast cancer metastatic
     Dosage: 400 MG, QD
     Route: 048
     Dates: start: 201902
  8. KISQALI [Suspect]
     Active Substance: RIBOCICLIB
     Dosage: 400 MG, QD (2 TABLET, DAILY)
     Route: 048
     Dates: end: 202202
  9. KISQALI [Suspect]
     Active Substance: RIBOCICLIB
     Dosage: 600 MG (3 TABLETS)
     Route: 048
     Dates: start: 201902

REACTIONS (20)
  - Metastases to spine [Unknown]
  - Metastases to liver [Unknown]
  - Pyrexia [Unknown]
  - Asthenia [Recovered/Resolved]
  - Vomiting [Recovered/Resolved]
  - Decreased immune responsiveness [Unknown]
  - Nausea [Recovered/Resolved]
  - Hypertension [Unknown]
  - Vision blurred [Unknown]
  - Bone pain [Unknown]
  - Pain in extremity [Unknown]
  - Tachycardia [Recovered/Resolved]
  - Discomfort [Unknown]
  - Viral infection [Unknown]
  - Malaise [Unknown]
  - Nasopharyngitis [Recovered/Resolved]
  - Headache [Recovered/Resolved]
  - Diarrhoea [Unknown]
  - Oedema peripheral [Unknown]
  - Headache [Unknown]

NARRATIVE: CASE EVENT DATE: 20210601
